FAERS Safety Report 6264445-X (Version None)
Quarter: 2009Q3

REPORT INFORMATION
  Report Type: 
  Country: None (occurrence: None)
  Receive Date: 20090710
  Receipt Date: 20090707
  Transmission Date: 20100115
  Serious: Yes (Death, Life-Threatening, Disabling)
  Sender: FDA-Public Use
  Company Number: US-MERCK-0906USA00972

PATIENT
  Age: 7 Year
  Sex: Female
  Weight: 28 kg

DRUGS (4)
  1. SINGULAIR [Suspect]
     Indication: ASTHMA
     Route: 048
     Dates: start: 20070727
  2. SINGULAIR [Suspect]
     Route: 065
     Dates: start: 20030901
  3. SINGULAIR [Suspect]
     Route: 065
     Dates: start: 20060601, end: 20070101
  4. ALBUTEROL [Concomitant]
     Route: 065

REACTIONS (1)
  - COMPLETED SUICIDE [None]
